FAERS Safety Report 7083646-4 (Version None)
Quarter: 2010Q4

REPORT INFORMATION
  Report Type: 
  Country: None (occurrence: None)
  Receive Date: 20101103
  Receipt Date: 20101103
  Transmission Date: 20110411
  Serious: Yes (Hospitalization)
  Sender: FDA-Public Use
  Company Number: None

PATIENT
  Age: 75 Year
  Sex: Male

DRUGS (6)
  1. SULFAMETHOXAZOLE AND TRIMETHOPRIM [Suspect]
     Indication: URINARY TRACT INFECTION
     Dosage: PO
     Route: 048
     Dates: start: 20100316, end: 20100325
  2. ACETAMINOPHEN [Suspect]
     Indication: PYREXIA
     Dosage: POSSIBLY 3 TO 4 GRAMS/24 HOURS PRN PO
     Route: 048
     Dates: start: 20100320, end: 20100325
  3. NEXIUM [Concomitant]
  4. LIPITOR [Concomitant]
  5. FOSAMAX [Concomitant]
  6. DILTIAZEM [Concomitant]

REACTIONS (5)
  - HEPATITIS [None]
  - HYPOPHAGIA [None]
  - LIVER FUNCTION TEST ABNORMAL [None]
  - NAUSEA [None]
  - PYREXIA [None]
